FAERS Safety Report 14840632 (Version 4)
Quarter: 2021Q1

REPORT INFORMATION
  Report Type: Other
  Country: CA (occurrence: CA)
  Receive Date: 20180503
  Receipt Date: 20210120
  Transmission Date: 20210419
  Serious: Yes (Hospitalization, Other)
  Sender: FDA-Public Use
  Company Number: CA-APOTEX-2018AP011412

PATIENT
  Age: 72 Year
  Sex: Male

DRUGS (23)
  1. PACLITAXEL. [Suspect]
     Active Substance: PACLITAXEL
     Indication: PANCREATIC CARCINOMA
     Dosage: 230 MILLIGRAM, CYCLICAL
     Route: 042
  2. VITAMIN B6 [Concomitant]
     Active Substance: PYRIDOXINE HYDROCHLORIDE
     Indication: NUTRITIONAL SUPPLEMENTATION
     Dosage: UNK
     Route: 065
  3. VITAMIN B12 [Concomitant]
     Active Substance: CYANOCOBALAMIN
     Indication: NUTRITIONAL SUPPLEMENTATION
     Dosage: UNK
     Route: 065
  4. ONDANSETRON [Concomitant]
     Active Substance: ONDANSETRON
     Indication: PROPHYLAXIS OF NAUSEA AND VOMITING
     Dosage: UNK
     Route: 065
  5. LORAZEPAM. [Concomitant]
     Active Substance: LORAZEPAM
     Indication: INSOMNIA
     Dosage: UNK
     Route: 065
  6. GEMCITABINE. [Suspect]
     Active Substance: GEMCITABINE
     Indication: PANCREATIC CARCINOMA
     Dosage: 1843 MG, CYCLICAL
     Route: 042
  7. MEDI4736 [Suspect]
     Active Substance: DURVALUMAB
     Indication: PANCREATIC CARCINOMA
     Dosage: 1500 MG, CYCLICAL
     Route: 042
  8. DURVALUMAB. [Suspect]
     Active Substance: DURVALUMAB
     Dosage: 1500 MILLIGRAM
     Route: 041
  9. MEDI4736 [Suspect]
     Active Substance: DURVALUMAB
     Dosage: 1500 MG, 1 EVERY 4 WEEKS
     Route: 041
  10. IMODIUM [Concomitant]
     Active Substance: LOPERAMIDE HYDROCHLORIDE
     Indication: DIARRHOEA
     Dosage: UNK
     Route: 016
  11. CYANOCOBALAMIN. [Concomitant]
     Active Substance: CYANOCOBALAMIN
     Indication: NUTRITIONAL SUPPLEMENTATION
     Dosage: UNK
     Route: 065
  12. DURVALUMAB. [Suspect]
     Active Substance: DURVALUMAB
     Indication: PANCREATIC CARCINOMA
     Dosage: 1500 MG, CYCLICAL
     Route: 042
  13. LEVETIRACETAM. [Concomitant]
     Active Substance: LEVETIRACETAM
     Indication: SEIZURE
     Dosage: UNK
     Route: 065
  14. CLOBETASOL [Concomitant]
     Active Substance: CLOBETASOL
     Indication: PSORIASIS
     Dosage: UNK
     Route: 065
  15. PYRIDOXINE HYDROCHLORIDE. [Concomitant]
     Active Substance: PYRIDOXINE HYDROCHLORIDE
     Indication: NUTRITIONAL SUPPLEMENTATION
     Dosage: UNK
     Route: 065
  16. GEMCITABINE. [Suspect]
     Active Substance: GEMCITABINE
     Dosage: 1843 MG, 3 EVERY 28 DAYS
     Route: 041
  17. TICILIMUMAB [Suspect]
     Active Substance: TREMELIMUMAB
     Indication: PANCREATIC CARCINOMA
     Dosage: 75 MG, 1 EVERY 4 WEEKS
     Route: 041
  18. LOPERAMIDE HYDROCHLORIDE. [Concomitant]
     Active Substance: LOPERAMIDE HYDROCHLORIDE
     Indication: DIARRHOEA
     Dosage: UNK, UNKNOWN
     Route: 065
  19. ABRAXANE [Suspect]
     Active Substance: PACLITAXEL
     Indication: PANCREATIC CARCINOMA
     Dosage: 230 MG, THREE EVERY 28 DAYS
     Route: 041
  20. LAMOTRIGINE. [Concomitant]
     Active Substance: LAMOTRIGINE
     Indication: SEIZURE
     Dosage: UNK
     Route: 065
  21. CREON [Concomitant]
     Active Substance: PANCRELIPASE AMYLASE\PANCRELIPASE LIPASE\PANCRELIPASE PROTEASE
     Indication: DYSPEPSIA
     Dosage: UNK
     Route: 065
  22. ACETAMINOPHEN. [Concomitant]
     Active Substance: ACETAMINOPHEN
     Indication: BACK PAIN
     Dosage: UNK
     Route: 065
  23. PANCREATIN [Concomitant]
     Active Substance: PANCRELIPASE
     Indication: DYSPEPSIA
     Dosage: UNK, UNKNOWN
     Route: 065

REACTIONS (1)
  - Pneumonia [Recovered/Resolved]
